FAERS Safety Report 6056288-7 (Version None)
Quarter: 2009Q1

REPORT INFORMATION
  Report Type: 
  Country: None (occurrence: None)
  Receive Date: 20090127
  Receipt Date: 20090127
  Transmission Date: 20090719
  Serious: No
  Sender: FDA-Public Use
  Company Number: None

PATIENT
  Sex: Male

DRUGS (4)
  1. RISPERIDONE [Suspect]
     Indication: AGGRESSION
     Dosage: 0.25 MG 1 QAM 2 QHS PO
     Route: 048
     Dates: start: 20080505
  2. RISPERIDONE [Suspect]
     Indication: ANXIETY
     Dosage: 0.25 MG 1 QAM 2 QHS PO
     Route: 048
     Dates: start: 20080505
  3. RISPERIDONE [Suspect]
     Indication: AGGRESSION
     Dosage: 0.25 MG 1 QAM 2 QHS PO
     Route: 048
     Dates: start: 20080815
  4. RISPERIDONE [Suspect]
     Indication: ANXIETY
     Dosage: 0.25 MG 1 QAM 2 QHS PO
     Route: 048
     Dates: start: 20080815

REACTIONS (3)
  - AGGRESSION [None]
  - ANXIETY [None]
  - THERAPEUTIC RESPONSE UNEXPECTED WITH DRUG SUBSTITUTION [None]
